FAERS Safety Report 7231646-3 (Version None)
Quarter: 2011Q1

REPORT INFORMATION
  Report Type: 
  Country: None (occurrence: None)
  Receive Date: 20110107
  Receipt Date: 20100429
  Transmission Date: 20110831
  Serious: Yes (Other)
  Sender: FDA-Public Use
  Company Number: AMI0020718

PATIENT
  Sex: Female

DRUGS (1)
  1. TIMOPTIC-XE [Suspect]
     Dosage: - 046;  3-5 YEARS

REACTIONS (1)
  - THROMBOSIS [None]
